FAERS Safety Report 16934991 (Version 1)
Quarter: 2019Q4

REPORT INFORMATION
  Report Type: Spontaneous
  Country: US (occurrence: US)
  Receive Date: 20191018
  Receipt Date: 20191018
  Transmission Date: 20200122
  Serious: Yes (Hospitalization)
  Sender: FDA-Public Use
  Company Number: None

PATIENT
  Sex: Female

DRUGS (6)
  1. PREVDNT [Concomitant]
  2. AZITHROMYCIN ANHYDROUS. [Concomitant]
     Active Substance: AZITHROMYCIN ANHYDROUS
  3. DEFERASIROX. [Suspect]
     Active Substance: DEFERASIROX
     Indication: HAEMOCHROMATOSIS
     Route: 048
  4. CEFDINIR. [Concomitant]
     Active Substance: CEFDINIR
  5. OXYCODONE [Concomitant]
     Active Substance: OXYCODONE
  6. HYDROX/UREA [Concomitant]

REACTIONS (1)
  - Iron overload [None]
